FAERS Safety Report 10977660 (Version 1)
Quarter: 2015Q1

REPORT INFORMATION
  Report Type: Spontaneous
  Country: IT (occurrence: None)
  Receive Date: 20150330
  Receipt Date: 20150330
  Transmission Date: 20150721
  Serious: Yes (Hospitalization)
  Sender: FDA-Public Use
  Company Number: FK201501482

PATIENT
  Age: 83 Year
  Sex: Female

DRUGS (5)
  1. MANNITOL (MANUFACTURER UNKNOWN) (MANNITOL) (MANNITOL) [Suspect]
     Active Substance: MANNITOL
     Indication: PRODUCT USED FOR UNKNOWN INDICATION
     Dosage: (NOT OTHERWISE SPECIFIED)
     Route: 042
     Dates: start: 20150226, end: 20150308
  2. CLEXANE (ENOXAPARIN SODIUM) [Concomitant]
     Active Substance: ENOXAPARIN SODIUM
  3. KEPPRA [Concomitant]
     Active Substance: LEVETIRACETAM
  4. FERLIXIT (FERRIC SODIUM GLUCONATE COMPLEX) [Suspect]
     Active Substance: SODIUM FERRIC GLUCONATE COMPLEX
     Indication: ANAEMIA
     Dosage: (NOT OTHERWISE SPECIFIED)
     Route: 042
     Dates: start: 20150302, end: 20150308
  5. SIRTAP (CEFTRIAXONE SODIUM) [Suspect]
     Active Substance: CEFTRIAXONE SODIUM
     Indication: PRODUCT USED FOR UNKNOWN INDICATION
     Dosage: (NOT OTHERWISE SPECIFIED)
     Route: 042
     Dates: start: 20150228, end: 20150308

REACTIONS (2)
  - Macroglossia [None]
  - Lip swelling [None]

NARRATIVE: CASE EVENT DATE: 20150305
